FAERS Safety Report 18123176 (Version 1)
Quarter: 2020Q3

REPORT INFORMATION
  Report Type: Other
  Country: CA (occurrence: CA)
  Receive Date: 20200807
  Receipt Date: 20200807
  Transmission Date: 20201103
  Serious: Yes (Other)
  Sender: FDA-Public Use
  Company Number: CA-APOTEX-2020AP014951

PATIENT

DRUGS (6)
  1. MEZAVANT [Suspect]
     Active Substance: MESALAMINE
     Indication: PRODUCT USED FOR UNKNOWN INDICATION
     Dosage: 1 DOSAGE FORM, BID
     Route: 042
  2. VENTOLIN [Suspect]
     Active Substance: ALBUTEROL SULFATE
     Indication: PRODUCT USED FOR UNKNOWN INDICATION
     Dosage: UNK
     Route: 065
  3. MEPOLIZUMAB [Suspect]
     Active Substance: MEPOLIZUMAB
     Indication: ASTHMA
     Dosage: 100 MILLIGRAM, Q.M.T.
     Route: 042
  4. PREDNISONE. [Suspect]
     Active Substance: PREDNISONE
     Indication: PRODUCT USED FOR UNKNOWN INDICATION
     Dosage: 2.5 MILLIGRAM
     Route: 065
  5. MOMETASONE [Suspect]
     Active Substance: MOMETASONE
     Indication: PRODUCT USED FOR UNKNOWN INDICATION
     Dosage: 400 MICROGRAM, BID
     Route: 065
  6. NUCALA [Concomitant]
     Active Substance: MEPOLIZUMAB
     Indication: PRODUCT USED FOR UNKNOWN INDICATION
     Dosage: UNK
     Route: 065

REACTIONS (9)
  - Eosinophilia [Recovered/Resolved]
  - Condition aggravated [Recovered/Resolved]
  - Productive cough [Recovered/Resolved]
  - Rhinitis [Recovered/Resolved]
  - Cough [Recovered/Resolved]
  - Eosinophil count increased [Recovered/Resolved]
  - Wheezing [Recovered/Resolved]
  - Lymphadenopathy [Recovered/Resolved]
  - Dyspnoea [Recovered/Resolved]
